FAERS Safety Report 6329765-9 (Version None)
Quarter: 2009Q3

REPORT INFORMATION
  Report Type: 
  Country: None (occurrence: None)
  Receive Date: 20090826
  Receipt Date: 20090817
  Transmission Date: 20100115
  Serious: Yes (Hospitalization, Other)
  Sender: FDA-Public Use
  Company Number: BR-ABBOTT-09P-020-0591706-00

PATIENT
  Sex: Female

DRUGS (5)
  1. HUMIRA [Suspect]
     Indication: DRUG USE FOR UNKNOWN INDICATION
  2. HUMIRA [Suspect]
     Dates: start: 20080801
  3. HUMIRA [Suspect]
  4. HUMIRA [Suspect]
     Dates: start: 20090601
  5. UNKNOWN MAGISTRAL FORMULA [Concomitant]
     Indication: MUSCULOSKELETAL PAIN
     Route: 048
     Dates: start: 20070101

REACTIONS (4)
  - ANAEMIA [None]
  - CROHN'S DISEASE [None]
  - MALABSORPTION [None]
  - OSTEOTOMY [None]
